FAERS Safety Report 14472533 (Version 2)
Quarter: 2018Q2

REPORT INFORMATION
  Report Type: Spontaneous
  Country: FR (occurrence: FR)
  Receive Date: 20180201
  Receipt Date: 20180530
  Transmission Date: 20180711
  Serious: Yes (Hospitalization, Other)
  Sender: FDA-Public Use
  Company Number: PHHY2018FR013382

PATIENT
  Age: 79 Year
  Sex: Male
  Weight: 90 kg

DRUGS (3)
  1. VITAMIN K1 [Suspect]
     Active Substance: PHYTONADIONE
     Indication: PROTHROMBIN TIME RATIO DECREASED
     Dosage: UNK
     Route: 048
     Dates: start: 20171111, end: 20171113
  2. CETIRIZINE [Suspect]
     Active Substance: CETIRIZINE HYDROCHLORIDE
     Indication: PRURITUS
     Dosage: 10 MG, UNK (TOTAL)
     Route: 048
     Dates: start: 20171114, end: 20171114
  3. VITAMINE B1 B6 BAYER [Suspect]
     Active Substance: PYRIDOXINE HYDROCHLORIDE\THIAMINE HYDROCHLORIDE
     Indication: PRODUCT USED FOR UNKNOWN INDICATION
     Route: 048

REACTIONS (1)
  - Thrombocytopenia [Not Recovered/Not Resolved]

NARRATIVE: CASE EVENT DATE: 20171117
